FAERS Safety Report 19206327 (Version 1)
Quarter: 2021Q2

REPORT INFORMATION
  Report Type: Spontaneous
  Country: US (occurrence: US)
  Receive Date: 20210501
  Receipt Date: 20210501
  Transmission Date: 20210717
  Serious: Yes (Hospitalization)
  Sender: FDA-Public Use
  Company Number: None

PATIENT
  Age: 69 Year
  Sex: Male
  Weight: 88.1 kg

DRUGS (1)
  1. CYTARABINE. [Suspect]
     Active Substance: CYTARABINE
     Indication: DRUG THERAPY
     Dates: end: 20201204

REACTIONS (9)
  - Lower gastrointestinal haemorrhage [None]
  - Enterocolitis [None]
  - Anal ulcer [None]
  - Diarrhoea [None]
  - Rectal ulcer [None]
  - Pyrexia [None]
  - Clostridium test positive [None]
  - Anal abscess [None]
  - Haemorrhoids [None]

NARRATIVE: CASE EVENT DATE: 20201207
